FAERS Safety Report 5488980-7 (Version None)
Quarter: 2007Q4

REPORT INFORMATION
  Report Type: 
  Country: None (occurrence: None)
  Receive Date: 20071015
  Receipt Date: 20070626
  Transmission Date: 20080405
  Serious: No
  Sender: FDA-Public Use
  Company Number: 2007SP002359

PATIENT
  Age: 68 Year
  Sex: Male
  Weight: 81.6475 kg

DRUGS (6)
  1. LUNESTA [Suspect]
     Indication: INSOMNIA
     Dosage: 3 MG;PRN;ORAL
     Route: 048
  2. ALTACE [Concomitant]
  3. COREG [Concomitant]
  4. LANOXIN [Concomitant]
  5. SPIRONOLACTONE [Interacting]
  6. AMTRIPTYLINE [Concomitant]

REACTIONS (1)
  - DYSGEUSIA [None]
